FAERS Safety Report 17190931 (Version 3)
Quarter: 2020Q1

REPORT INFORMATION
  Report Type: Spontaneous
  Country: US (occurrence: US)
  Receive Date: 20191223
  Receipt Date: 20200127
  Transmission Date: 20200409
  Serious: Yes (Other)
  Sender: FDA-Public Use
  Company Number: US-AKORN PHARMACEUTICALS-2019AKN02522

PATIENT
  Age: 15 Year
  Sex: Female
  Weight: 68.03 kg

DRUGS (1)
  1. MYORISAN [Suspect]
     Active Substance: ISOTRETINOIN
     Indication: ACNE
     Dosage: 20 MG, 1X/DAY
     Dates: start: 20191021, end: 2019

REACTIONS (2)
  - Off label use [Recovered/Resolved]
  - Attention-seeking behaviour [Unknown]

NARRATIVE: CASE EVENT DATE: 201910
